FAERS Safety Report 10195754 (Version 1)
Quarter: 2014Q2

REPORT INFORMATION
  Report Type: Spontaneous
  Country: US (occurrence: None)
  Receive Date: 20140522
  Receipt Date: 20140522
  Transmission Date: 20141212
  Serious: Yes (Hospitalization, Other)
  Sender: FDA-Public Use
  Company Number: UTC-044259

PATIENT
  Age: 51 Year
  Sex: Female
  Weight: 76.5 kg

DRUGS (7)
  1. REMODULIN [Suspect]
     Route: 058
     Dates: start: 20131231
  2. FUROSEMIDE (FUROSEMIDE) [Concomitant]
  3. LEVOTHYROXINE (LEVOTHYROXINE) [Concomitant]
  4. MAGNESIUM OXIDE (MAGNESIUM OXIDE) [Concomitant]
  5. METFORMIN (METFORMIN) [Concomitant]
  6. METOPROLOL (METOPROLOL) [Concomitant]
  7. POTASSIUM CHLORIDE (POTASSIUM CHLORIDE) [Concomitant]

REACTIONS (10)
  - Dyspnoea [None]
  - Fluid retention [None]
  - Oedema peripheral [None]
  - Pleural effusion [None]
  - Cardiomyopathy [None]
  - Hypoxia [None]
  - Hyperglycaemia [None]
  - Pain in jaw [None]
  - Abdominal distension [None]
  - Fatigue [None]
